FAERS Safety Report 5162914-7 (Version None)
Quarter: 2006Q4

REPORT INFORMATION
  Report Type: 
  Country: None (occurrence: None)
  Receive Date: 20061201
  Receipt Date: 20061117
  Transmission Date: 20070319
  Serious: No
  Sender: FDA-Public Use
  Company Number: US-MERCK-0611USA05745M

PATIENT
  Age: 28 Year
  Sex: Female

DRUGS (3)
  1. INDOCIN [Suspect]
     Indication: PREMATURE LABOUR
     Route: 065
  2. TERBUTALINE SULFATE [Concomitant]
     Route: 065
  3. MAGNESIUM SULFATE [Concomitant]
     Route: 065

REACTIONS (3)
  - BLOOD MAGNESIUM INCREASED [None]
  - CAESAREAN SECTION [None]
  - DRUG EXPOSURE DURING PREGNANCY [None]
